FAERS Safety Report 6569870-5 (Version None)
Quarter: 2010Q1

REPORT INFORMATION
  Report Type: 
  Country: None (occurrence: None)
  Receive Date: 20100204
  Receipt Date: 20100121
  Transmission Date: 20100710
  Serious: Yes (Other)
  Sender: FDA-Public Use
  Company Number: PHEH2009US17799

PATIENT
  Sex: Female
  Weight: 63.492 kg

DRUGS (2)
  1. RECLAST [Suspect]
     Indication: OSTEOPOROSIS
     Dosage: 5 MG, ONCE PER YEAR
     Route: 042
     Dates: start: 20081101
  2. RECLAST [Suspect]
     Dosage: 5 MG, PER YEAR
     Route: 042
     Dates: start: 20091117

REACTIONS (5)
  - ANXIETY [None]
  - BLOOD PRESSURE INCREASED [None]
  - DEPRESSION [None]
  - MYALGIA [None]
  - PAIN IN JAW [None]
